FAERS Safety Report 4827363-7 (Version None)
Quarter: 2005Q4

REPORT INFORMATION
  Report Type: 
  Country: None (occurrence: None)
  Receive Date: 20051114
  Receipt Date: 20050725
  Transmission Date: 20060501
  Serious: Yes (Hospitalization)
  Sender: FDA-Public Use
  Company Number: US-MERCK-0507USA04002

PATIENT
  Age: 66 Year
  Sex: Male
  Weight: 91 kg

DRUGS (5)
  1. VIOXX [Suspect]
     Indication: BACK PAIN
     Route: 048
     Dates: start: 20020329, end: 20040101
  2. TYLENOL (CAPLET) [Concomitant]
     Indication: PAIN
     Route: 065
     Dates: start: 19650101
  3. ADVIL [Concomitant]
     Indication: MYALGIA
     Route: 065
     Dates: start: 19650101, end: 20030706
  4. ADVIL [Concomitant]
     Indication: HEADACHE
     Route: 065
     Dates: start: 19650101, end: 20030706
  5. SYNTHROID [Concomitant]
     Indication: HYPOTHYROIDISM
     Route: 065

REACTIONS (10)
  - ACUTE MYOCARDIAL INFARCTION [None]
  - CARDIAC FAILURE CONGESTIVE [None]
  - CHEST DISCOMFORT [None]
  - DYSLIPIDAEMIA [None]
  - DYSPNOEA [None]
  - EXTRASYSTOLES [None]
  - FATIGUE [None]
  - INTRACARDIAC THROMBUS [None]
  - ISCHAEMIC CARDIOMYOPATHY [None]
  - ORTHOSTATIC HYPOTENSION [None]
